FAERS Safety Report 14464590 (Version 1)
Quarter: 2018Q1

REPORT INFORMATION
  Report Type: Other
  Country: US (occurrence: US)
  Receive Date: 20180130
  Receipt Date: 20180130
  Transmission Date: 20180509
  Serious: No
  Sender: FDA-Public Use
  Company Number: US-ACORDA-ACO_135314_2017

PATIENT
  Age: 60 Year
  Sex: Female

DRUGS (1)
  1. AMPYRA [Suspect]
     Active Substance: DALFAMPRIDINE
     Indication: PERONEAL NERVE PALSY
     Dosage: 10 MG, Q 12 HRS
     Route: 048
     Dates: start: 20141002

REACTIONS (2)
  - Bronchitis [Recovered/Resolved]
  - Off label use [Unknown]

NARRATIVE: CASE EVENT DATE: 20170227
